FAERS Safety Report 5405930-X (Version None)
Quarter: 2007Q3

REPORT INFORMATION
  Report Type: 
  Country: None (occurrence: None)
  Receive Date: 20070802
  Receipt Date: 20070727
  Transmission Date: 20080115
  Serious: Yes (Death)
  Sender: FDA-Public Use
  Company Number: S07-USA-03241-01

PATIENT
  Age: 13 Year
  Sex: Male

DRUGS (1)
  1. CELEXA [Suspect]
     Dates: start: 20020801, end: 20040408

REACTIONS (3)
  - ASPHYXIA [None]
  - SUICIDE ATTEMPT [None]
  - TRAUMATIC BRAIN INJURY [None]
